FAERS Safety Report 10470686 (Version 2)
Quarter: 2014Q3

REPORT INFORMATION
  Report Type: Spontaneous
  Country: US (occurrence: US)
  Receive Date: 20140923
  Receipt Date: 20140923
  Transmission Date: 20150326
  Serious: Yes (Hospitalization)
  Sender: FDA-Public Use
  Company Number: US-GLAXOSMITHKLINE-A0867514A

PATIENT
  Sex: Female
  Weight: 140.5 kg

DRUGS (1)
  1. AVANDIA [Suspect]
     Active Substance: ROSIGLITAZONE MALEATE
     Indication: DIABETES MELLITUS
     Dosage: 8MG TWICE PER DAY
     Route: 048

REACTIONS (11)
  - Renal failure [Unknown]
  - Pulmonary oedema [Unknown]
  - Cardio-respiratory arrest [Unknown]
  - Atrial fibrillation [Unknown]
  - Myocardial infarction [Not Recovered/Not Resolved]
  - Insomnia [Unknown]
  - Amnesia [Unknown]
  - Cardiac failure congestive [Unknown]
  - Pleural effusion [Unknown]
  - Sinus tachycardia [Unknown]
  - Suicidal ideation [Unknown]
